FAERS Safety Report 8018701-5 (Version None)
Quarter: 2012Q1

REPORT INFORMATION
  Report Type: 
  Country: None (occurrence: None)
  Receive Date: 20120103
  Receipt Date: 20120103
  Transmission Date: 20120608
  Serious: No
  Sender: FDA-Public Use
  Company Number: None

PATIENT
  Age: 50 Year
  Sex: Male
  Weight: 111.13 kg

DRUGS (2)
  1. OMEPRAZOLE [Suspect]
     Indication: ABDOMINAL DISCOMFORT
     Dosage: ONE CAPSULE
     Route: 048
     Dates: start: 20060101, end: 20111231
  2. OMEPRAZOLE [Suspect]
     Indication: ULCER
     Dosage: ONE CAPSULE
     Route: 048
     Dates: start: 20060101, end: 20111231

REACTIONS (3)
  - STRESS FRACTURE [None]
  - FOOT FRACTURE [None]
  - OSTEOPOROSIS [None]
